FAERS Safety Report 9204769 (Version 1)
Quarter: 2013Q2

REPORT INFORMATION
  Report Type: Spontaneous
  Country: US (occurrence: US)
  Receive Date: 20130402
  Receipt Date: 20130402
  Transmission Date: 20140414
  Serious: Yes (Other)
  Sender: FDA-Public Use
  Company Number: US-GLAXOSMITHKLINE-A1018082A

PATIENT
  Age: 71 Year
  Sex: Female

DRUGS (10)
  1. HORIZANT [Suspect]
     Indication: RESTLESS LEGS SYNDROME
     Dosage: 600MG PER DAY
     Route: 048
     Dates: start: 201212, end: 20130328
  2. METFORMIN [Concomitant]
  3. LEVOXYL [Concomitant]
  4. DIVALPROEX [Concomitant]
  5. GEMFIBROZIL [Concomitant]
  6. SERTRALINE [Concomitant]
  7. ATORVASTATIN [Concomitant]
  8. ENALAPRIL [Concomitant]
  9. METOPROLOL [Concomitant]
  10. LEVOTHYROXINE [Concomitant]

REACTIONS (6)
  - Convulsion [Not Recovered/Not Resolved]
  - Abnormal sleep-related event [Unknown]
  - Irritability [Unknown]
  - Drug ineffective [Unknown]
  - Contusion [Unknown]
  - Pain in extremity [Unknown]
